FAERS Safety Report 13965593 (Version 3)
Quarter: 2018Q2

REPORT INFORMATION
  Report Type: Report from Study
  Country: US (occurrence: US)
  Receive Date: 20170913
  Receipt Date: 20180402
  Transmission Date: 20180711
  Serious: Yes (Hospitalization, Other)
  Sender: FDA-Public Use
  Company Number: US-ASTELLAS-2017US036225

PATIENT
  Age: 31 Year
  Sex: Male

DRUGS (3)
  1. TACROLIMUS. [Suspect]
     Active Substance: TACROLIMUS
     Indication: ORGAN TRANSPLANT
     Dosage: 4 MG (3 MILLIGRAMS IN THE MORNING AND 1 MILLIGRAM IN THE EVENING), ONCE DAILY
     Route: 048
  2. TACROLIMUS. [Suspect]
     Active Substance: TACROLIMUS
     Indication: SKIN GRAFT
     Route: 048
  3. TACROLIMUS. [Suspect]
     Active Substance: TACROLIMUS
     Indication: RENAL TRANSPLANT

REACTIONS (5)
  - Off label use [Unknown]
  - Malaise [Unknown]
  - Drug hypersensitivity [Unknown]
  - Transplant rejection [Unknown]
  - Transplant [Recovering/Resolving]

NARRATIVE: CASE EVENT DATE: 2011
